FAERS Safety Report 7627765-X (Version None)
Quarter: 2011Q3

REPORT INFORMATION
  Report Type: 
  Country: None (occurrence: None)
  Receive Date: 20110721
  Receipt Date: 20110715
  Transmission Date: 20111222
  Serious: Yes (Hospitalization)
  Sender: FDA-Public Use
  Company Number: GB-PFIZER INC-2011149495

PATIENT
  Age: 36 Year
  Sex: Male

DRUGS (5)
  1. METHADONE [Concomitant]
  2. CITALOPRAM [Concomitant]
  3. IBUPROFEN [Suspect]
     Indication: TOOTHACHE
     Dosage: 3200 MG, 1X/DAY
     Route: 048
     Dates: start: 20110609, end: 20110622
  4. OLANZAPINE [Concomitant]
  5. DIAZEPAM [Concomitant]

REACTIONS (2)
  - INCORRECT DOSE ADMINISTERED [None]
  - DUODENAL ULCER PERFORATION [None]
